FAERS Safety Report 24357674 (Version 1)
Quarter: 2024Q3

REPORT INFORMATION
  Report Type: Spontaneous
  Country: US (occurrence: None)
  Receive Date: 20240923
  Receipt Date: 20240923
  Transmission Date: 20241016
  Serious: Yes (Other)
  Sender: Public
  Company Number: None

PATIENT
  Age: 71 Year
  Sex: Female
  Weight: 60.3 kg

DRUGS (18)
  1. PROLIA [Suspect]
     Active Substance: DENOSUMAB
     Indication: Osteopenia
     Route: 058
  2. FLUVOXAMINE [Concomitant]
     Active Substance: FLUVOXAMINE
  3. LAMOTRIGINE [Concomitant]
     Active Substance: LAMOTRIGINE
  4. CLONAZEPAM [Concomitant]
     Active Substance: CLONAZEPAM
  5. SEROQUEL [Concomitant]
     Active Substance: QUETIAPINE FUMARATE
  6. estradiol vaginal cream [Concomitant]
  7. trim o san gel [Concomitant]
  8. GABAPENTIN [Concomitant]
     Active Substance: GABAPENTIN
  9. POLYETHYLENE GLYCOL 3350 [Concomitant]
     Active Substance: POLYETHYLENE GLYCOL 3350
  10. LACTULOSE [Concomitant]
     Active Substance: LACTULOSE
  11. PSYLLIUM HUSK [Concomitant]
     Active Substance: PSYLLIUM HUSK
  12. ADVIL [Concomitant]
     Active Substance: IBUPROFEN\IBUPROFEN SODIUM
  13. Benefited [Concomitant]
  14. Fish il [Concomitant]
  15. CALCIUM [Concomitant]
     Active Substance: CALCIUM
  16. VITAMIN D [Concomitant]
     Active Substance: VITAMIN D NOS
  17. VITAMINS [Concomitant]
     Active Substance: VITAMINS
  18. docudate sodium [Concomitant]

REACTIONS (5)
  - Osteonecrosis of jaw [None]
  - Speech disorder [None]
  - Irritable bowel syndrome [None]
  - Physical product label issue [None]
  - Product communication issue [None]

NARRATIVE: CASE EVENT DATE: 20240301
